FAERS Safety Report 6311539-6 (Version None)
Quarter: 2009Q3

REPORT INFORMATION
  Report Type: 
  Country: None (occurrence: None)
  Receive Date: 20090817
  Receipt Date: 20090806
  Transmission Date: 20100115
  Serious: Yes (Life-Threatening, Hospitalization)
  Sender: FDA-Public Use
  Company Number: JP-PFIZER INC-2009252946

PATIENT
  Age: 59 Year

DRUGS (6)
  1. SUNITINIB MALATE [Suspect]
     Indication: GASTROINTESTINAL STROMAL TUMOUR
     Dosage: 50 MG, DAILY, TDD 50 MG
     Route: 048
     Dates: start: 20090519, end: 20090529
  2. ACETAMINOPHEN [Concomitant]
     Dosage: UNK
     Route: 048
     Dates: start: 20090529
  3. MIYARISAN BM [Concomitant]
     Route: 048
     Dates: start: 20090531
  4. FAMOTIDINE [Concomitant]
     Route: 048
     Dates: start: 20090609
  5. KYTRIL [Concomitant]
     Route: 048
     Dates: start: 20090702
  6. WYPAX [Concomitant]
     Route: 048
     Dates: start: 20090706

REACTIONS (5)
  - CARDIAC FAILURE [None]
  - DYSPNOEA [None]
  - FATIGUE [None]
  - FLUID RETENTION [None]
  - THROMBOCYTOPENIA [None]
